FAERS Safety Report 6379073-5 (Version None)
Quarter: 2009Q3

REPORT INFORMATION
  Report Type: 
  Country: None (occurrence: None)
  Receive Date: 20090923
  Receipt Date: 20090923
  Transmission Date: 20100115
  Serious: No
  Sender: FDA-Public Use
  Company Number: None

PATIENT
  Age: 67 Year
  Sex: Male
  Weight: 60 kg

DRUGS (7)
  1. ACYCLOVIR [Suspect]
     Indication: HERPES ZOSTER DISSEMINATED
     Dosage: 600MG TID IV
     Route: 042
     Dates: start: 20090528, end: 20090531
  2. BUDESONIDE [Concomitant]
  3. DAPSONE [Concomitant]
  4. CASPOFUNGIN [Concomitant]
  5. MYCOPHENOLATE MOFETIL [Concomitant]
  6. CYCLOSPORINE [Concomitant]
  7. PREDNISONE [Concomitant]

REACTIONS (2)
  - MENTAL STATUS CHANGES [None]
  - RENAL IMPAIRMENT [None]
